FAERS Safety Report 12312461 (Version 2)
Quarter: 2016Q2

REPORT INFORMATION
  Report Type: Spontaneous
  Country: US (occurrence: US)
  Receive Date: 20160428
  Receipt Date: 20160617
  Transmission Date: 20160815
  Serious: No
  Sender: FDA-Public Use
  Company Number: US-ASTRAZENECA-2016SE32694

PATIENT
  Sex: Male

DRUGS (1)
  1. TUDORZA PRESSAIR [Suspect]
     Active Substance: ACLIDINIUM BROMIDE
     Route: 055

REACTIONS (6)
  - Circumstance or information capable of leading to medication error [Unknown]
  - Drug dose omission [Unknown]
  - Visual impairment [Unknown]
  - Product quality issue [Unknown]
  - Device malfunction [Unknown]
  - Device failure [Unknown]
